FAERS Safety Report 6757076-6 (Version None)
Quarter: 2010Q2

REPORT INFORMATION
  Report Type: 
  Country: None (occurrence: None)
  Receive Date: 20100604
  Receipt Date: 20100526
  Transmission Date: 20101027
  Serious: Yes (Hospitalization)
  Sender: FDA-Public Use
  Company Number: FR-ABBOTT-10P-056-0647088-00

PATIENT
  Age: 54 Year
  Sex: Male

DRUGS (11)
  1. DEPAKOTE [Suspect]
     Indication: PSYCHIATRIC SYMPTOM
     Dosage: GASTRO-RESISTANT TABLET
     Route: 048
     Dates: start: 20100123
  2. DEPAKOTE [Suspect]
     Dosage: GASTRO-RESISTANT TABLET
     Route: 048
     Dates: end: 20100101
  3. DEPAKOTE [Suspect]
     Dosage: GASTRO-RESISTANT TABLET
     Route: 048
  4. THERALENE [Suspect]
     Indication: PSYCHIATRIC SYMPTOM
     Route: 048
     Dates: start: 20100123
  5. RIVOTRIL [Suspect]
     Indication: PSYCHIATRIC SYMPTOM
     Route: 048
     Dates: start: 20100123
  6. LOXAPAC [Suspect]
     Indication: PSYCHIATRIC SYMPTOM
     Dosage: COATED
     Route: 048
     Dates: start: 20100123
  7. EFFEXOR [Suspect]
     Indication: PSYCHIATRIC SYMPTOM
     Dosage: MODIFIED-RELEASE
     Route: 048
     Dates: start: 20100123
  8. CLOZAPINE [Suspect]
     Indication: PSYCHIATRIC SYMPTOM
     Route: 048
     Dates: start: 20100123
  9. CLOZAPINE [Suspect]
     Route: 048
     Dates: end: 20100101
  10. CLOZAPINE [Suspect]
     Route: 048
  11. CLOPIXOL [Concomitant]
     Indication: DRUG USE FOR UNKNOWN INDICATION
     Dates: start: 20100119, end: 20100123

REACTIONS (3)
  - ALTERED STATE OF CONSCIOUSNESS [None]
  - LOSS OF CONSCIOUSNESS [None]
  - RESPIRATORY DEPRESSION [None]
